FAERS Safety Report 5441347-X (Version None)
Quarter: 2007Q3

REPORT INFORMATION
  Report Type: 
  Country: None (occurrence: None)
  Receive Date: 20070903
  Receipt Date: 20070827
  Transmission Date: 20080115
  Serious: Yes (Other)
  Sender: FDA-Public Use
  Company Number: PHBS2007GB14220

PATIENT
  Age: 61 Year
  Sex: Male

DRUGS (1)
  1. ZOLEDRONIC ACID [Suspect]
     Indication: MULTIPLE MYELOMA
     Dosage: UNK, QMO

REACTIONS (8)
  - BIOPSY BONE ABNORMAL [None]
  - DYSGEUSIA [None]
  - EDENTULOUS [None]
  - JAW DISORDER [None]
  - OSTEONECROSIS [None]
  - PAIN IN JAW [None]
  - SINUS DISORDER [None]
  - X-RAY ABNORMAL [None]
